FAERS Safety Report 13908485 (Version 4)
Quarter: 2017Q4

REPORT INFORMATION
  Report Type: Report from Study
  Country: US (occurrence: US)
  Receive Date: 20170827
  Receipt Date: 20171018
  Transmission Date: 20180320
  Serious: Yes (Death, Other)
  Sender: FDA-Public Use
  Company Number: US-009507513-1708USA010187

PATIENT
  Age: 72 Year
  Sex: Female

DRUGS (2)
  1. KEYTRUDA [Suspect]
     Active Substance: PEMBROLIZUMAB
     Dosage: 2ND INFUSION
     Route: 042
     Dates: start: 20170707, end: 20170707
  2. KEYTRUDA [Suspect]
     Active Substance: PEMBROLIZUMAB
     Indication: LUNG NEOPLASM MALIGNANT
     Dosage: 1ST INFUSION
     Route: 042
     Dates: start: 20170616, end: 20170616

REACTIONS (1)
  - Death [Fatal]

NARRATIVE: CASE EVENT DATE: 20170811
